FAERS Safety Report 4517735-2 (Version None)
Quarter: 2004Q4

REPORT INFORMATION
  Report Type: 
  Country: None (occurrence: None)
  Receive Date: 20041201
  Receipt Date: 20041201
  Transmission Date: 20050328
  Serious: Yes (Disabling)
  Sender: FDA-Public Use
  Company Number: None

PATIENT
  Age: 62 Year
  Sex: Male
  Weight: 93.441 kg

DRUGS (4)
  1. CIPROFLOXACIN [Suspect]
     Indication: PROSTATITIS
     Dosage: 500 MG BID PO
     Route: 048
  2. XANAX [Concomitant]
  3. LIPITOR [Concomitant]
  4. WELLBUTRIN [Concomitant]

REACTIONS (2)
  - ARTHRALGIA [None]
  - TENDONITIS [None]
